FAERS Safety Report 7734241-2 (Version None)
Quarter: 2011Q3

REPORT INFORMATION
  Report Type: 
  Country: None (occurrence: None)
  Receive Date: 20110907
  Receipt Date: 20110901
  Transmission Date: 20111222
  Serious: Yes (Hospitalization, Congenital Anomaly, Other)
  Sender: FDA-Public Use
  Company Number: FR-PFIZER INC-2011204198

PATIENT
  Sex: Male

DRUGS (5)
  1. AMITRIPTYLINE HCL [Suspect]
     Dosage: 25MG DAILY
     Route: 062
     Dates: start: 20100930, end: 20101019
  2. RELPAX [Suspect]
     Dosage: UNK
     Route: 064
  3. TRAMADOL HCL [Suspect]
     Dosage: 100 MG, 2X/DAY
     Route: 062
     Dates: start: 20100921, end: 20101005
  4. CLONAZEPAM [Suspect]
     Dosage: 4 GTT, 1X/DAY
     Route: 064
     Dates: start: 20100921, end: 20101014
  5. NOCERTONE [Suspect]
     Dosage: 60MG, 2 TABLETS DAILY
     Route: 064
     Dates: start: 20100921, end: 20100924

REACTIONS (11)
  - ATRIOVENTRICULAR SEPTAL DEFECT [None]
  - JAUNDICE [None]
  - WEIGHT GAIN POOR [None]
  - MATERNAL EXPOSURE DURING PREGNANCY [None]
  - HEART DISEASE CONGENITAL [None]
  - FOETAL GROWTH RESTRICTION [None]
  - INGUINAL HERNIA [None]
  - TACHYPNOEA [None]
  - ASTHENIA [None]
  - HYPOCALCAEMIA [None]
  - USE OF ACCESSORY RESPIRATORY MUSCLES [None]
